FAERS Safety Report 7570428-X (Version None)
Quarter: 2011Q2

REPORT INFORMATION
  Report Type: 
  Country: None (occurrence: None)
  Receive Date: 20110624
  Receipt Date: 20110315
  Transmission Date: 20111010
  Serious: No
  Sender: FDA-Public Use
  Company Number: US-ALLERGAN-1103697US

PATIENT
  Age: 26 Year
  Sex: Female

DRUGS (2)
  1. LATISSE [Suspect]
     Indication: HYPOTRICHOSIS
     Dosage: UNK
     Route: 061
     Dates: start: 20110217, end: 20110311
  2. LATISSE [Suspect]

REACTIONS (2)
  - SCLERAL PIGMENTATION [None]
  - WRONG TECHNIQUE IN DRUG USAGE PROCESS [None]
